FAERS Safety Report 12389846 (Version 3)
Quarter: 2017Q2

REPORT INFORMATION
  Report Type: Spontaneous
  Country: US (occurrence: US)
  Receive Date: 20160520
  Receipt Date: 20170418
  Transmission Date: 20170830
  Serious: No
  Sender: FDA-Public Use
  Company Number: US-ACTELION-A-US2016-135894

PATIENT
  Age: 57 Year
  Sex: Male

DRUGS (11)
  1. ORENITRAM [Suspect]
     Active Substance: TREPROSTINIL
     Dosage: 7.625 MG, TID
     Route: 065
  2. ORENITRAM [Suspect]
     Active Substance: TREPROSTINIL
     Indication: PRODUCT USED FOR UNKNOWN INDICATION
     Dosage: 7.75 MG, TID
     Route: 065
  3. ATORVASTATIN [Concomitant]
     Active Substance: ATORVASTATIN
  4. UPTRAVI [Concomitant]
     Active Substance: SELEXIPAG
  5. WARFARIN [Concomitant]
     Active Substance: WARFARIN
  6. SILDENAFIL. [Concomitant]
     Active Substance: SILDENAFIL
  7. ALBUTEROL. [Concomitant]
     Active Substance: ALBUTEROL
  8. SPIRONOLACTONE. [Concomitant]
     Active Substance: SPIRONOLACTONE
  9. TRACLEER [Suspect]
     Active Substance: BOSENTAN
     Indication: PULMONARY ARTERIAL HYPERTENSION
     Dosage: 125 MG, BID
     Route: 048
     Dates: start: 20151127
  10. NEXIUM [Concomitant]
     Active Substance: ESOMEPRAZOLE MAGNESIUM
  11. VITAMIN D3 [Concomitant]
     Active Substance: CHOLECALCIFEROL

REACTIONS (2)
  - Nausea [Recovered/Resolved]
  - Dyspnoea exertional [Unknown]

NARRATIVE: CASE EVENT DATE: 20170405
